FAERS Safety Report 10792252 (Version 1)
Quarter: 2015Q1

REPORT INFORMATION
  Report Type: Spontaneous
  Country: GB (occurrence: None)
  Receive Date: 20150211
  Receipt Date: 20150211
  Transmission Date: 20150721
  Serious: Yes (Hospitalization)
  Sender: FDA-Public Use
  Company Number: FK201500628

PATIENT
  Age: 35 Year
  Sex: Female

DRUGS (2)
  1. MAGNESIUM SULFATE. [Suspect]
     Active Substance: MAGNESIUM SULFATE
     Indication: PROPHYLAXIS
  2. CORTICOSTEROIDS [Suspect]
     Active Substance: CORTICOSTEROID NOS
     Indication: PROPHYLAXIS

REACTIONS (4)
  - Product use issue [None]
  - Non-cardiogenic pulmonary oedema [None]
  - Exposure during pregnancy [None]
  - Acute respiratory failure [None]
